FAERS Safety Report 19218390 (Version 2)
Quarter: 2025Q3

REPORT INFORMATION
  Report Type: Report from Study
  Country: US (occurrence: US)
  Receive Date: 20210505
  Receipt Date: 20250731
  Transmission Date: 20251020
  Serious: Yes (Other)
  Sender: TAKEDA
  Company Number: US-SHIRE-US201925391

PATIENT
  Age: 67 Year
  Sex: Male

DRUGS (4)
  1. HUMAN IMMUNOGLOBULIN G [Suspect]
     Active Substance: HUMAN IMMUNOGLOBULIN G
     Indication: Primary immunodeficiency syndrome
  2. HUMAN IMMUNOGLOBULIN G [Suspect]
     Active Substance: HUMAN IMMUNOGLOBULIN G
     Indication: Non-Hodgkin^s lymphoma
  3. HUMAN IMMUNOGLOBULIN G [Suspect]
     Active Substance: HUMAN IMMUNOGLOBULIN G
     Indication: B-cell lymphoma
  4. HUMAN IMMUNOGLOBULIN G [Suspect]
     Active Substance: HUMAN IMMUNOGLOBULIN G
     Indication: Hypogammaglobulinaemia

REACTIONS (6)
  - Upper respiratory tract infection [Unknown]
  - Off label use [Unknown]
  - Gastrointestinal disorder [Unknown]
  - Infection [Unknown]
  - Sinusitis [Unknown]
  - Asthenia [Unknown]

NARRATIVE: CASE EVENT DATE: 20250728
